FAERS Safety Report 15826220 (Version 5)
Quarter: 2019Q1

REPORT INFORMATION
  Report Type: Spontaneous
  Country: CH (occurrence: CH)
  Receive Date: 20190115
  Receipt Date: 20190204
  Transmission Date: 20190417
  Serious: Yes (Hospitalization)
  Sender: FDA-Public Use
  Company Number: CH-PFIZER INC-2019014545

PATIENT
  Age: 74 Year
  Sex: Female

DRUGS (22)
  1. LAMICTAL [Suspect]
     Active Substance: LAMOTRIGINE
     Indication: FOCAL DYSCOGNITIVE SEIZURES
     Dosage: 25 MG, 2X/DAY (1-0-1)
     Route: 048
     Dates: start: 20181101, end: 20181202
  2. LAMICTAL [Suspect]
     Active Substance: LAMOTRIGINE
     Dosage: 25 MG, 3X/DAY (2-0-1)
     Route: 048
     Dates: start: 20181203, end: 20181211
  3. FORTECORTIN [DEXAMETHASONE] [Suspect]
     Active Substance: DEXAMETHASONE
     Dosage: UNK
     Route: 048
     Dates: start: 20181202, end: 20181210
  4. HUMULUS LUPULUS EXTRACT/VALERIANA OFFICINALIS ROOT [Suspect]
     Active Substance: HERBALS\HOPS\VALERIAN
     Dosage: 1 DF, AS NEEDED (AS NECESSARY)
     Route: 048
  5. ELTROXIN [Suspect]
     Active Substance: LEVOTHYROXINE
     Dosage: 125 UG, 1X/DAY
     Route: 048
     Dates: start: 20181028
  6. FORTECORTIN [DEXAMETHASONE] [Suspect]
     Active Substance: DEXAMETHASONE
     Indication: CEREBRAL OEDEMA MANAGEMENT
     Dosage: UNK
     Route: 048
     Dates: start: 20181029, end: 20181112
  7. VALTREX [Suspect]
     Active Substance: VALACYCLOVIR HYDROCHLORIDE
     Indication: HERPES ZOSTER CUTANEOUS DISSEMINATED
     Dosage: 1000 MG, 3X/DAY (500 MG 2-2-2)
     Route: 048
     Dates: start: 20181116, end: 20181118
  8. VI D3 [Suspect]
     Active Substance: CHOLECALCIFEROL
     Dosage: 4000 IU, 1X/DAY (1-0-0) LONG-TERM THERAPY
     Route: 065
  9. LAXOBERON [Concomitant]
     Active Substance: SODIUM PICOSULFATE
     Dosage: UNK
     Dates: start: 20181114, end: 20181116
  10. PANTOZOL [Suspect]
     Active Substance: PANTOPRAZOLE SODIUM
     Indication: PROPHYLAXIS AGAINST GASTROINTESTINAL ULCER
     Dosage: 20 MG, 1X/DAY
     Route: 048
     Dates: start: 20181031
  11. FRAGMIN [Suspect]
     Active Substance: DALTEPARIN SODIUM
     Indication: THROMBOSIS PROPHYLAXIS
     Dosage: 2500 IU OR 5000 IU, 1X/DAY
     Route: 058
     Dates: start: 20181027
  12. ELTROXIN [Suspect]
     Active Substance: LEVOTHYROXINE
     Indication: THYROIDECTOMY
     Dosage: 100 UG, 1X/DAY (PREVIOUSLY EUTHYROX 125 ?G 1-0-0 (AT LEAST 3 MONTHS))
     Route: 048
     Dates: start: 20181028
  13. DAFALGAN [Suspect]
     Active Substance: ACETAMINOPHEN
     Indication: HEADACHE
     Dosage: 1 G, 4X/DAY
     Route: 048
     Dates: start: 20181113
  14. PARAGOL N [Concomitant]
     Dosage: UNK
     Dates: start: 20181114, end: 20181116
  15. SYMFONA N [Suspect]
     Active Substance: GINKGO
     Dosage: 120 MG, 1X/DAY (PREVIOUSLY TEBOKAN 120 MG 1-0-0 TABLETS (AT LEAST 3 MONTHS))
     Route: 048
     Dates: start: 20181028, end: 20181219
  16. NOVALGIN (METAMIZOLE SODIUM) [Suspect]
     Active Substance: METAMIZOLE SODIUM
     Dosage: 40 GTT, 4X/DAY (40-40-40-40)
     Route: 048
     Dates: start: 20181113, end: 20181117
  17. ASS CARDIO [Suspect]
     Active Substance: ASPIRIN
     Dosage: 100 MG, 1X/DAY (1-0-0)
     Route: 048
     Dates: end: 20181210
  18. REDORMIN [REMIFENTANIL HYDROCHLORIDE] [Suspect]
     Active Substance: REMIFENTANIL HYDROCHLORIDE
     Dosage: UNK
     Route: 048
  19. MOTILIUM [Concomitant]
     Active Substance: DOMPERIDONE
     Dosage: 1 DF, SINGLE (IN TOTAL)
     Dates: start: 20181115, end: 20181115
  20. BRIVIACT [Suspect]
     Active Substance: BRIVARACETAM
     Indication: FOCAL DYSCOGNITIVE SEIZURES
     Dosage: 50 MG, 2X/DAY (1-0-1)
     Route: 048
     Dates: start: 20180729
  21. BRUFEN [Suspect]
     Active Substance: IBUPROFEN
     Dosage: 800 MG, AS NEEDED (AS NECESSARY)
     Route: 048
     Dates: start: 20181203, end: 20181205
  22. MORPHIN HCL [Concomitant]
     Active Substance: MORPHINE HYDROCHLORIDE
     Dosage: 1 DF, SINGLE
     Route: 048
     Dates: start: 20181116, end: 20181116

REACTIONS (2)
  - Drug eruption [Not Recovered/Not Resolved]
  - Drug reaction with eosinophilia and systemic symptoms [Not Recovered/Not Resolved]

NARRATIVE: CASE EVENT DATE: 20181202
